FAERS Safety Report 9278647 (Version 1)
Quarter: 2013Q2

REPORT INFORMATION
  Report Type: Report from Study
  Country: US (occurrence: US)
  Receive Date: 20130508
  Receipt Date: 20130508
  Transmission Date: 20140414
  Serious: Yes (Hospitalization, Other)
  Sender: FDA-Public Use
  Company Number: US-ABBOTT-13P-163-1083815-00

PATIENT
  Age: 69 Year
  Sex: Female
  Weight: 76.27 kg

DRUGS (7)
  1. HUMIRA [Suspect]
     Indication: RHEUMATOID ARTHRITIS
     Dates: start: 2009, end: 201208
  2. HUMIRA [Suspect]
     Dates: start: 201211, end: 201304
  3. HUMIRA [Suspect]
     Dates: start: 20130501
  4. METHOTREXATE [Concomitant]
     Indication: PRODUCT USED FOR UNKNOWN INDICATION
  5. FOLIC ACID [Concomitant]
     Indication: PRODUCT USED FOR UNKNOWN INDICATION
  6. SYNTHROID [Concomitant]
     Indication: PRODUCT USED FOR UNKNOWN INDICATION
  7. VITAMIN D [Concomitant]
     Indication: PRODUCT USED FOR UNKNOWN INDICATION

REACTIONS (4)
  - Hip arthroplasty [Recovered/Resolved]
  - Arthritis infective [Recovered/Resolved]
  - Arthralgia [Recovering/Resolving]
  - Hip arthroplasty [Recovering/Resolving]
